FAERS Safety Report 9271187 (Version 2)
Quarter: 2013Q2

REPORT INFORMATION
  Report Type: Report from Study
  Country: CO (occurrence: CO)
  Receive Date: 20130506
  Receipt Date: 20130507
  Transmission Date: 20140414
  Serious: Yes (Death, Hospitalization)
  Sender: FDA-Public Use
  Company Number: PHHY2013CO043597

PATIENT
  Age: 77 Year
  Sex: Female

DRUGS (9)
  1. EXJADE [Suspect]
     Indication: SICKLE CELL ANAEMIA
     Dosage: 500 MG, ONCE A DAY
     Route: 048
     Dates: start: 20120307, end: 20130412
  2. ENALAPRIL [Concomitant]
  3. ATORVASTATIN [Concomitant]
  4. CLOPIDOGREL [Concomitant]
  5. CARVEDILOL [Concomitant]
  6. OMEPRAZOLE [Concomitant]
  7. FUROSEMIDE [Concomitant]
  8. ASPIRIN [Concomitant]
  9. FOLIC ACID [Concomitant]

REACTIONS (8)
  - Death [Fatal]
  - Hypotension [Unknown]
  - Cardiogenic shock [Unknown]
  - Asthenia [Unknown]
  - Decreased appetite [Unknown]
  - General physical health deterioration [Unknown]
  - Haemoglobin decreased [Unknown]
  - Serum ferritin increased [Unknown]
